FAERS Safety Report 14804115 (Version 1)
Quarter: 2018Q2

REPORT INFORMATION
  Report Type: Spontaneous
  Country: US (occurrence: US)
  Receive Date: 20180425
  Receipt Date: 20180425
  Transmission Date: 20180711
  Serious: Yes (Death, Other)
  Sender: FDA-Public Use
  Company Number: US-DRREDDYS-USA/USA/18/0098002

PATIENT
  Age: 11 Year
  Sex: Female

DRUGS (2)
  1. TACROLIMUS. [Suspect]
     Active Substance: TACROLIMUS
     Indication: IMMUNOSUPPRESSION
     Route: 065
  2. MYCOPHENOLATE MOFETIL. [Suspect]
     Active Substance: MYCOPHENOLATE MOFETIL
     Indication: IMMUNOSUPPRESSION
     Route: 065

REACTIONS (7)
  - Chronic allograft nephropathy [Unknown]
  - Mental status changes [Unknown]
  - Encephalopathy [Fatal]
  - Glomerulosclerosis [Unknown]
  - Multiple organ dysfunction syndrome [Unknown]
  - Transplant rejection [Unknown]
  - BK virus infection [Unknown]
